FAERS Safety Report 10440942 (Version 1)
Quarter: 2014Q3

REPORT INFORMATION
  Report Type: Spontaneous
  Country: US (occurrence: None)
  Receive Date: 20140905
  Receipt Date: 20140905
  Transmission Date: 20150326
  Serious: Yes (Other)
  Sender: FDA-Public Use
  Company Number: None

PATIENT
  Age: 40 Year
  Sex: Female
  Weight: 47 kg

DRUGS (1)
  1. CILOXAN [Suspect]
     Active Substance: CIPROFLOXACIN HYDROCHLORIDE
     Indication: CONJUNCTIVITIS
     Dosage: DROP 1 AFFECTED EYE, FOUR TIMES A DAILY, INTO THE EYE
     Route: 047
     Dates: start: 20140902, end: 20140904

REACTIONS (2)
  - Product substitution issue [None]
  - Eye discharge [None]

NARRATIVE: CASE EVENT DATE: 20140902
